FAERS Safety Report 5268633-0 (Version None)
Quarter: 2007Q1

REPORT INFORMATION
  Report Type: 
  Country: None (occurrence: None)
  Receive Date: 20070313
  Receipt Date: 20070301
  Transmission Date: 20070707
  Serious: Yes (Death)
  Sender: FDA-Public Use
  Company Number: 236554

PATIENT
  Age: 33 Year
  Sex: Male
  Weight: 82 kg

DRUGS (5)
  1. MABTHERA (RITUXIMAB) CONC FOR SOLUTION FOR INFUSION [Suspect]
     Indication: DIFFUSE LARGE B-CELL LYMPHOMA
     Dosage: 375 MG/KG, INTRAVENOUS
     Route: 042
     Dates: start: 20061108, end: 20070115
  2. ADRIAMYCIN (DOXOURBICIN/DOXORUBICIN HYDROCHLORIDE) [Concomitant]
  3. CYCLOPHOSPHAMIDE [Concomitant]
  4. VINCRISTINE [Concomitant]
  5. PREDNISOLONE [Concomitant]

REACTIONS (4)
  - ADENOVIRUS INFECTION [None]
  - DIARRHOEA [None]
  - HEPATITIS [None]
  - RESPIRATORY FAILURE [None]
